FAERS Safety Report 24614466 (Version 1)
Quarter: 2024Q4

REPORT INFORMATION
  Report Type: Spontaneous
  Country: BR (occurrence: BR)
  Receive Date: 20241113
  Receipt Date: 20241113
  Transmission Date: 20250115
  Serious: Yes (Death, Hospitalization, Other)
  Sender: SANOFI AVENTIS
  Company Number: BR-SA-2024SA329937

PATIENT
  Age: 16 Year
  Sex: Female
  Weight: 35 kg

DRUGS (1)
  1. CEREZYME [Suspect]
     Active Substance: IMIGLUCERASE
     Indication: Gaucher^s disease
     Dosage: 60 UNITS PER KILO, Q15D
     Route: 042
     Dates: start: 20090101, end: 20241029

REACTIONS (3)
  - Respiratory failure [Fatal]
  - General physical health deterioration [Fatal]
  - Lung disorder [Fatal]

NARRATIVE: CASE EVENT DATE: 20241103
